FAERS Safety Report 5421158-1 (Version None)
Quarter: 2007Q3

REPORT INFORMATION
  Report Type: 
  Country: None (occurrence: None)
  Receive Date: 20070821
  Receipt Date: 20070817
  Transmission Date: 20080115
  Serious: Yes (Life-Threatening, Hospitalization, Other)
  Sender: FDA-Public Use
  Company Number: GB-ABBOTT-07P-167-0378065-00

PATIENT
  Age: 27 Year
  Sex: Male
  Weight: 110 kg

DRUGS (4)
  1. SIBUTRAMINE HYDROCHLORIDE [Suspect]
     Indication: WEIGHT CONTROL
     Dates: start: 20061208, end: 20070219
  2. ACETAMINOPHEN W/ CODEINE [Concomitant]
     Indication: HEADACHE
     Dates: start: 20070702
  3. DICLOFENAC [Concomitant]
     Indication: HEADACHE
     Dosage: UNIT UNSPECIFIED
     Dates: start: 20070608
  4. MIGRALEVE [Concomitant]
     Indication: HEADACHE
     Dates: start: 20070418

REACTIONS (1)
  - INTRACRANIAL PRESSURE INCREASED [None]
